FAERS Safety Report 10354775 (Version 1)
Quarter: 2014Q3

REPORT INFORMATION
  Report Type: Spontaneous
  Country: US (occurrence: None)
  Receive Date: 20140729
  Receipt Date: 20140729
  Transmission Date: 20150326
  Serious: Yes (Other)
  Sender: FDA-Public Use
  Company Number: None

PATIENT
  Age: 42 Year
  Sex: Female
  Weight: 72.58 kg

DRUGS (2)
  1. TOPIRAMATE 25 MG ZYDUS [Suspect]
     Active Substance: TOPIRAMATE
     Indication: GENERALISED NON-CONVULSIVE EPILEPSY
     Dosage: 1 PILL  TWICE DAILY TAKEN BY MOUTH
     Route: 048
     Dates: start: 20140707, end: 20140727
  2. TOPIRAMATE 25 MG ZYDUS [Suspect]
     Active Substance: TOPIRAMATE
     Indication: MIGRAINE
     Dosage: 1 PILL  TWICE DAILY TAKEN BY MOUTH
     Route: 048
     Dates: start: 20140707, end: 20140727

REACTIONS (8)
  - Hypohidrosis [None]
  - Dysgeusia [None]
  - Body temperature increased [None]
  - Temperature intolerance [None]
  - Gingival bleeding [None]
  - Weight decreased [None]
  - Gingival recession [None]
  - Decreased appetite [None]

NARRATIVE: CASE EVENT DATE: 20140728
